FAERS Safety Report 9269884 (Version 3)
Quarter: 2014Q2

REPORT INFORMATION
  Report Type: Spontaneous
  Country: HU (occurrence: HU)
  Receive Date: 20130503
  Receipt Date: 20140410
  Transmission Date: 20141212
  Serious: Yes (Other)
  Sender: FDA-Public Use
  Company Number: HU-ROCHE-1220049

PATIENT
  Age: 56 Year
  Sex: Female

DRUGS (4)
  1. BEVACIZUMAB [Suspect]
     Indication: LUNG ADENOCARCINOMA
     Route: 065
     Dates: start: 20110428, end: 20130214
  2. BEVACIZUMAB [Suspect]
     Route: 065
     Dates: start: 20110809, end: 20130214
  3. CDDP [Concomitant]
     Indication: LUNG ADENOCARCINOMA
     Route: 065
     Dates: start: 20110428
  4. PACLITAXEL [Concomitant]
     Indication: LUNG ADENOCARCINOMA
     Route: 065
     Dates: start: 20110428

REACTIONS (2)
  - Tooth loss [Unknown]
  - Pain in jaw [Unknown]
